FAERS Safety Report 16300347 (Version 4)
Quarter: 2019Q2

REPORT INFORMATION
  Report Type: Report from Study
  Country: DE (occurrence: DE)
  Receive Date: 20190510
  Receipt Date: 20190626
  Transmission Date: 20190711
  Serious: Yes (Death, Other)
  Sender: FDA-Public Use
  Company Number: DE-SHIRE-DE201910666

PATIENT

DRUGS (6)
  1. TEDUGLUTIDE [Suspect]
     Active Substance: TEDUGLUTIDE
     Indication: SHORT-BOWEL SYNDROME
     Dosage: 0.28 MILLILITER, 1X/DAY:QD
     Route: 058
     Dates: start: 20190122
  2. TEDUGLUTIDE [Suspect]
     Active Substance: TEDUGLUTIDE
     Dosage: 0.3 MILLILITER, 1X/DAY:QD
     Route: 058
     Dates: start: 20190114
  3. NACL [Concomitant]
     Active Substance: SODIUM CHLORIDE
     Indication: PRODUCT USED FOR UNKNOWN INDICATION
  4. TEDUGLUTIDE [Suspect]
     Active Substance: TEDUGLUTIDE
     Dosage: 2.5 MILLIGRAM
     Route: 065
     Dates: start: 201902
  5. TPN [AMINO ACIDS NOS;CARBOHYDRATES NOS;MINERALS NOS;VITAMINS NOS] [Concomitant]
     Indication: PRODUCT USED FOR UNKNOWN INDICATION
  6. BEPANTHEN [DEXPANTHENOL;HYALURONATE SODIUM] [Concomitant]
     Indication: PRODUCT USED FOR UNKNOWN INDICATION

REACTIONS (12)
  - Cardiac failure [Fatal]
  - Abdominal pain [Unknown]
  - Weight increased [Unknown]
  - Respiratory arrest [Fatal]
  - Electrocardiogram QT prolonged [Unknown]
  - Headache [Unknown]
  - Long QT syndrome [Fatal]
  - Gastrointestinal stoma output increased [Unknown]
  - Brain injury [Fatal]
  - Electrolyte imbalance [Fatal]
  - Hypokalaemia [Unknown]
  - Appetite disorder [Unknown]

NARRATIVE: CASE EVENT DATE: 201905
